FAERS Safety Report 9164858 (Version 2)
Quarter: 2013Q2

REPORT INFORMATION
  Report Type: Spontaneous
  Country: US (occurrence: US)
  Receive Date: 20130315
  Receipt Date: 20130506
  Transmission Date: 20140414
  Serious: Yes (Hospitalization)
  Sender: FDA-Public Use
  Company Number: US-PFIZER INC-2013084355

PATIENT
  Age: 82 Year
  Sex: Female

DRUGS (1)
  1. REVATIO [Suspect]
     Indication: ATRIAL FIBRILLATION
     Dosage: 20 MG, 3X/DAY
     Dates: start: 20130115

REACTIONS (3)
  - Fall [Unknown]
  - Hip fracture [Unknown]
  - Off label use [Unknown]
